FAERS Safety Report 9149653 (Version 2)
Quarter: 2013Q2

REPORT INFORMATION
  Report Type: Spontaneous
  Country: US (occurrence: US)
  Receive Date: 20130308
  Receipt Date: 20130419
  Transmission Date: 20140414
  Serious: Yes (Hospitalization, Other)
  Sender: FDA-Public Use
  Company Number: US-PFIZER INC-2013080061

PATIENT
  Age: 50 Year
  Sex: Male
  Weight: 102 kg

DRUGS (3)
  1. GABAPENTIN [Suspect]
     Indication: DIABETIC NEUROPATHY
     Dosage: 300 MG, 3X/DAY
     Route: 048
     Dates: start: 201302
  2. HYDROCODONE/ACETAMINOPHEN [Suspect]
     Indication: DIABETIC NEUROPATHY
     Dosage: 5/500 MG, 4X/DAY
     Route: 048
     Dates: start: 201302
  3. AMITRIPTYLINE [Suspect]
     Indication: DIABETIC NEUROPATHY
     Dosage: 50 MG, 2X/DAY
     Route: 048
     Dates: start: 201302

REACTIONS (1)
  - Drug ineffective [Not Recovered/Not Resolved]
